FAERS Safety Report 8888303 (Version 1)
Quarter: 2012Q4

REPORT INFORMATION
  Report Type: 
  Country: US (occurrence: US)
  Receive Date: 20121106
  Receipt Date: 20121106
  Transmission Date: 20130627
  Serious: No
  Sender: FDA-Public Use
  Company Number: US-PFIZER INC-2012273952

PATIENT
  Age: 68 Year
  Sex: Male
  Weight: 63 kg

DRUGS (3)
  1. SUTENT [Suspect]
     Indication: METASTATIC RENAL CELL CARCINOMA
     Dosage: 50 mg, cyclic (50 mg, first42 day cycle 29 days)
     Dates: start: 20121004
  2. ACETYLSALICYLIC ACID [Concomitant]
     Dosage: 81 mg, daily
  3. METOPROLOL [Concomitant]
     Indication: BP

REACTIONS (6)
  - Decreased appetite [Unknown]
  - Dysgeusia [Not Recovered/Not Resolved]
  - Stomatitis [Not Recovered/Not Resolved]
  - Weight decreased [Unknown]
  - Hyperaesthesia [Unknown]
  - Malaise [Unknown]
